FAERS Safety Report 12394888 (Version 2)
Quarter: 2016Q2

REPORT INFORMATION
  Report Type: Spontaneous
  Country: US (occurrence: US)
  Receive Date: 20160523
  Receipt Date: 20160607
  Transmission Date: 20160815
  Serious: Yes (Other)
  Sender: FDA-Public Use
  Company Number: US-AMGEN-USASP2016062789

PATIENT
  Age: 77 Year
  Sex: Female
  Weight: 62.59 kg

DRUGS (5)
  1. DECITABINE. [Concomitant]
     Active Substance: DECITABINE
     Indication: MYELODYSPLASTIC SYNDROME
     Dosage: 20 UNK, ONCE A DAY FOR 5 DAYS/MONTH
     Route: 042
     Dates: start: 201407
  2. LEVOTHYROXINE. [Concomitant]
     Active Substance: LEVOTHYROXINE
     Indication: HYPOTHYROIDISM
     Dosage: 0.112 MG, ONCE A DAY
     Route: 048
     Dates: start: 1986
  3. ELTROMBOPAG [Concomitant]
     Active Substance: ELTROMBOPAG
     Dosage: UNK
     Dates: start: 201408
  4. PROCRIT [Suspect]
     Active Substance: ERYTHROPOIETIN
     Indication: PRODUCT USED FOR UNKNOWN INDICATION
     Dosage: 40000 UNIT, WEEKLY
     Route: 058
     Dates: start: 201603, end: 201605
  5. PROCRIT [Suspect]
     Active Substance: ERYTHROPOIETIN
     Dosage: 60000 UNIT, WEEKLY
     Route: 058
     Dates: start: 201605

REACTIONS (5)
  - Aspiration bone marrow [Unknown]
  - Neutrophil count abnormal [Unknown]
  - Off label use [Not Recovered/Not Resolved]
  - No therapeutic response [Unknown]
  - Drug dose omission [Unknown]

NARRATIVE: CASE EVENT DATE: 201603
